FAERS Safety Report 8002872-0 (Version None)
Quarter: 2011Q4

REPORT INFORMATION
  Report Type: 
  Country: None (occurrence: None)
  Receive Date: 20111222
  Receipt Date: 20110113
  Transmission Date: 20120403
  Serious: No
  Sender: FDA-Public Use
  Company Number: US-GLAXOSMITHKLINE-A0905872A

PATIENT
  Age: 80 Year
  Sex: Male

DRUGS (5)
  1. FLECAINIDE ACETATE [Concomitant]
  2. AVODART [Suspect]
     Indication: PROSTATOMEGALY
     Dosage: .5MG PER DAY
     Route: 048
  3. PRAVASTATIN [Concomitant]
  4. HYZAAR [Concomitant]
  5. LEVOXYL [Concomitant]

REACTIONS (2)
  - NIPPLE PAIN [None]
  - BREAST SWELLING [None]
